FAERS Safety Report 5495401-7 (Version None)
Quarter: 2007Q4

REPORT INFORMATION
  Report Type: 
  Country: None (occurrence: None)
  Receive Date: 20071023
  Receipt Date: 20071002
  Transmission Date: 20080405
  Serious: Yes (Other)
  Sender: FDA-Public Use
  Company Number: ZYD-AE-07-079

PATIENT
  Age: 59 Year
  Sex: Male

DRUGS (4)
  1. RIBAVIRIN [Suspect]
     Indication: HEPATITIS C
     Dosage: 1200MG DAILY - PO : 1000MG DAILY - PO
     Route: 048
     Dates: start: 20070605, end: 20070710
  2. RIBAVIRIN [Suspect]
     Indication: HEPATITIS C
     Dosage: 1200MG DAILY - PO : 1000MG DAILY - PO
     Route: 048
     Dates: start: 20070805
  3. PEGASYS [Suspect]
     Indication: HEPATITIS C
     Dosage: SQ ; 180MCG DAILY - SQ
     Route: 058
     Dates: start: 20070605, end: 20070710
  4. PEGASYS [Suspect]
     Indication: HEPATITIS C
     Dosage: SQ ; 180MCG DAILY - SQ
     Route: 058
     Dates: start: 20070805

REACTIONS (4)
  - ANAEMIA [None]
  - DECREASED APPETITE [None]
  - NEUTROPHIL COUNT DECREASED [None]
  - WHITE BLOOD CELL COUNT DECREASED [None]
